FAERS Safety Report 6171739-5 (Version None)
Quarter: 2009Q2

REPORT INFORMATION
  Report Type: 
  Country: None (occurrence: None)
  Receive Date: 20090427
  Receipt Date: 20090427
  Transmission Date: 20091009
  Serious: Yes (Hospitalization)
  Sender: FDA-Public Use
  Company Number: None

PATIENT
  Age: 72 Year
  Sex: Female
  Weight: 67 kg

DRUGS (7)
  1. NOVOLIN 70/30 [Suspect]
     Indication: TYPE 2 DIABETES MELLITUS
     Dosage: 15 UNIT+20 UNIT MORNING+AFTERNOON SQ
     Route: 058
     Dates: start: 20071125, end: 20090412
  2. SERETIDE DISKUS [Concomitant]
  3. SALMETEROL/FLUTICASONE [Concomitant]
  4. VENTOLIN [Concomitant]
  5. AZITHROMYCIN [Concomitant]
  6. PREDNISOLONE [Concomitant]
  7. REGULAR INSULIN [Concomitant]

REACTIONS (6)
  - ASTHMA [None]
  - CONDITION AGGRAVATED [None]
  - ERYTHEMA [None]
  - PRURITUS [None]
  - RASH [None]
  - RASH PAPULAR [None]
